FAERS Safety Report 7939265-8 (Version None)
Quarter: 2011Q4

REPORT INFORMATION
  Report Type: 
  Country: None (occurrence: None)
  Receive Date: 20111124
  Receipt Date: 20111116
  Transmission Date: 20120403
  Serious: Yes (Hospitalization)
  Sender: FDA-Public Use
  Company Number: FR-BRISTOL-MYERS SQUIBB COMPANY-16235905

PATIENT
  Age: 64 Year
  Sex: Female

DRUGS (15)
  1. EPIVIR [Suspect]
     Dosage: EPIVIR 10 MG
     Route: 048
     Dates: start: 20100101
  2. FLUTICASONE PROPIONATE [Concomitant]
  3. FERROUS SULFATE TAB [Concomitant]
  4. ZIAGEN [Suspect]
     Dosage: ZIAGEN 300 MG
     Route: 048
     Dates: start: 20100101
  5. AMLODIPINE BESYLATE [Concomitant]
  6. SUSTIVA [Suspect]
     Dosage: SUSTIVA 600 MG CAPSULE
     Route: 048
     Dates: start: 20100101
  7. EUPRESSYL [Concomitant]
  8. NEXIUM [Concomitant]
  9. PROGRAF [Suspect]
     Dosage: PROGRAF 10 MG
     Route: 048
     Dates: start: 20100101
  10. SINGULAIR [Concomitant]
  11. MYCOPHENOLATE MOFETIL (CELLCEPT) [Suspect]
     Dosage: CELLCEPT 500 MG
     Route: 048
     Dates: start: 20100101
  12. PRAVASTATIN [Concomitant]
  13. ARANESP [Concomitant]
  14. PREDNISOLONE [Concomitant]
  15. BISOPROLOL FUMARATE [Concomitant]

REACTIONS (3)
  - VIRAL INFECTION [None]
  - ANAEMIA [None]
  - NEUTROPENIA [None]
